FAERS Safety Report 5019373-4 (Version None)
Quarter: 2006Q2

REPORT INFORMATION
  Report Type: 
  Country: None (occurrence: None)
  Receive Date: 20060531
  Receipt Date: 20060518
  Transmission Date: 20061013
  Serious: Yes (Death, Hospitalization, Other)
  Sender: FDA-Public Use
  Company Number: 2006066869

PATIENT
  Age: 22 Year
  Sex: Female

DRUGS (6)
  1. CELEBREX [Suspect]
     Indication: RHEUMATOID ARTHRITIS
     Dosage: 400 MG (200 MG, UNKNOWN) ORAL
     Route: 048
     Dates: start: 19950101, end: 20060401
  2. CELECOXIB (CELECOXIB) [Suspect]
     Indication: ILL-DEFINED DISORDER
  3. NIMESULIDE (NIMESULIDE) [Suspect]
     Indication: RHEUMATOID ARTHRITIS
     Dates: end: 20051001
  4. PHENYLEPHRINE (PHENYLEPHRINE) [Suspect]
     Indication: UVEITIS
     Dosage: INTRAOCULAR
     Route: 031
     Dates: start: 20060408, end: 20060408
  5. CONTRACEPTIVE, UNSPECIFIED [Concomitant]
  6. LEFLUNOMIDE [Concomitant]

REACTIONS (16)
  - ARTHRITIS [None]
  - BLOOD URINE PRESENT [None]
  - BREATH SOUNDS ABNORMAL [None]
  - CARDIAC FAILURE [None]
  - CONDITION AGGRAVATED [None]
  - DRUG HYPERSENSITIVITY [None]
  - DYSPNOEA [None]
  - ERYTHEMA [None]
  - FOOT DEFORMITY [None]
  - HEART RATE INCREASED [None]
  - OEDEMA [None]
  - PAIN [None]
  - PHARMACEUTICAL PRODUCT COMPLAINT [None]
  - PULMONARY OEDEMA [None]
  - RESPIRATORY DISORDER [None]
  - UVEITIS [None]
